FAERS Safety Report 9162150 (Version 1)
Quarter: 2013Q1

REPORT INFORMATION
  Report Type: Spontaneous
  Country: US (occurrence: US)
  Receive Date: 20130314
  Receipt Date: 20130314
  Transmission Date: 20140127
  Serious: No
  Sender: FDA-Public Use
  Company Number: US-BAYER-2013-031860

PATIENT
  Age: 71 Year
  Sex: Male
  Weight: 93 kg

DRUGS (5)
  1. ALEVE CAPLET/TABLET,MIDOL EXTENDED RELIEF CAPLET [Suspect]
     Dosage: 2 DF, PRN
     Route: 048
  2. ALEVE CAPLET/TABLET,MIDOL EXTENDED RELIEF CAPLET [Suspect]
     Dosage: 4 DF, ONCE
     Route: 048
     Dates: start: 20130311, end: 20130311
  3. CRESTOR [Concomitant]
  4. CLARITIN [Concomitant]
  5. SYMBICORT [Concomitant]

REACTIONS (1)
  - Overdose [None]
